FAERS Safety Report 20829156 (Version 1)
Quarter: 2022Q2

REPORT INFORMATION
  Report Type: Spontaneous
  Country: US (occurrence: US)
  Receive Date: 20220513
  Receipt Date: 20220513
  Transmission Date: 20220721
  Serious: No
  Sender: FDA-Public Use
  Company Number: US-SA-SAC20220511001322

PATIENT
  Sex: Male

DRUGS (9)
  1. DUPIXENT [Suspect]
     Active Substance: DUPILUMAB
     Indication: Dermatitis atopic
     Dosage: 300 MG, QOW
     Route: 058
     Dates: start: 20180413
  2. IRON [Concomitant]
     Active Substance: IRON
  3. CYANOCOBALAMIN [Concomitant]
     Active Substance: CYANOCOBALAMIN
  4. VITAMIN D2 [Concomitant]
     Active Substance: ERGOCALCIFEROL
  5. TOPROL XL [Concomitant]
     Active Substance: METOPROLOL SUCCINATE
  6. LIALDA [Concomitant]
     Active Substance: MESALAMINE
  7. DULERA [Concomitant]
     Active Substance: FORMOTEROL FUMARATE DIHYDRATE\MOMETASONE FUROATE
  8. CITRACAL + D3 [Concomitant]
  9. VANICREAM [Concomitant]
     Active Substance: TITANIUM DIOXIDE\ZINC OXIDE

REACTIONS (1)
  - COVID-19 [Unknown]
